FAERS Safety Report 25444317 (Version 2)
Quarter: 2025Q2

REPORT INFORMATION
  Report Type: Spontaneous
  Country: BE (occurrence: BE)
  Receive Date: 20250617
  Receipt Date: 20250627
  Transmission Date: 20250717
  Serious: Yes (Disabling, Other)
  Sender: AMGEN
  Company Number: None

PATIENT
  Age: 50 Year
  Sex: Female
  Weight: 55 kg

DRUGS (5)
  1. ADALIMUMAB [Suspect]
     Active Substance: ADALIMUMAB
     Indication: Psoriatic arthropathy
     Route: 058
     Dates: start: 20220114, end: 20250415
  2. ACETAMINOPHEN [Concomitant]
     Active Substance: ACETAMINOPHEN
  3. EUTHYROX [Concomitant]
     Active Substance: LEVOTHYROXINE SODIUM
     Dosage: MORNING
  4. FOLIC ACID [Concomitant]
     Active Substance: FOLIC ACID
     Dosage: DURING DINER : 1.5 TAB , SUNDAY
  5. METHOTREXATE [Concomitant]
     Active Substance: METHOTREXATE

REACTIONS (3)
  - Demyelination [Not Recovered/Not Resolved]
  - CSF oligoclonal band present [Not Recovered/Not Resolved]
  - Facial pain [Not Recovered/Not Resolved]

NARRATIVE: CASE EVENT DATE: 20241115
